FAERS Safety Report 8796061 (Version 1)
Quarter: 2012Q4

REPORT INFORMATION
  Report Type: 
  Country: BR (occurrence: BR)
  Receive Date: 20120919
  Receipt Date: 20120919
  Transmission Date: 20130627
  Serious: Yes (Hospitalization)
  Sender: FDA-Public Use
  Company Number: BR-ASTRAZENECA-2012SE71576

PATIENT
  Age: 27797 Day
  Sex: Male
  Weight: 73 kg

DRUGS (3)
  1. CRESTOR [Suspect]
     Indication: BLOOD CHOLESTEROL INCREASED
     Route: 048
     Dates: start: 2010, end: 201209
  2. CRESTOR [Suspect]
     Indication: BLOOD CHOLESTEROL INCREASED
     Route: 048
  3. UNSPECIFIED [Concomitant]
     Indication: HYPERTENSION
     Route: 048

REACTIONS (1)
  - Coronary artery occlusion [Recovered/Resolved]
